FAERS Safety Report 7879766-4 (Version None)
Quarter: 2011Q4

REPORT INFORMATION
  Report Type: 
  Country: None (occurrence: None)
  Receive Date: 20111101
  Receipt Date: 20111020
  Transmission Date: 20120403
  Serious: Yes (Other)
  Sender: FDA-Public Use
  Company Number: IT-ELI_LILLY_AND_COMPANY-IT201110005474

PATIENT
  Sex: Male

DRUGS (7)
  1. MODURETIC 5-50 [Concomitant]
     Dosage: UNK
  2. ATORVASTATIN CALCIUM [Concomitant]
     Dosage: UNK
  3. PAROXETINE HCL [Concomitant]
     Dosage: UNK
  4. CANDESARTAN CILEXETIL [Concomitant]
     Dosage: UNK
  5. HUMALOG MIX 75/25 [Suspect]
     Dosage: 50 IU, QD
     Route: 058
     Dates: start: 20100821, end: 20110820
  6. ZOPRANOL [Concomitant]
     Dosage: UNK
  7. ASPIRIN [Concomitant]
     Dosage: UNK

REACTIONS (1)
  - HYPOGLYCAEMIC COMA [None]
